FAERS Safety Report 7111730-5 (Version None)
Quarter: 2010Q4

REPORT INFORMATION
  Report Type: 
  Country: None (occurrence: None)
  Receive Date: 20101118
  Receipt Date: 20101110
  Transmission Date: 20110411
  Serious: Yes (Death)
  Sender: FDA-Public Use
  Company Number: FR-MERCK-1011FRA00052

PATIENT
  Age: 60 Year
  Sex: Male

DRUGS (15)
  1. CANCIDAS [Suspect]
     Indication: CANDIDA SEPSIS
     Route: 042
     Dates: start: 20100623
  2. CILASTATIN SODIUM AND IMIPENEM [Suspect]
     Indication: ABDOMINAL WALL INFECTION
     Route: 042
     Dates: start: 20100601, end: 20100709
  3. LINEZOLID [Suspect]
     Indication: ABDOMINAL WALL INFECTION
     Route: 065
     Dates: start: 20100601, end: 20100709
  4. PIPERACILLIN SODIUM AND TAZOBACTAM SODIUM [Suspect]
     Indication: ABDOMINAL WALL ABSCESS
     Route: 042
     Dates: start: 20100624, end: 20100709
  5. MYCOPHENOLATE MOFETIL [Concomitant]
     Route: 065
  6. METHYLPREDNISOLONE SODIUM SUCCINATE [Concomitant]
     Route: 065
  7. MORPHINE SULFATE [Concomitant]
     Route: 065
  8. ESOMEPRAZOLE MAGNESIUM [Concomitant]
     Route: 065
  9. ZOLEDRONIC ACID [Concomitant]
     Route: 065
  10. PRAVASTATIN SODIUM [Concomitant]
     Route: 065
  11. URSODIOL [Concomitant]
     Route: 065
  12. LOPERAMIDE HYDROCHLORIDE [Concomitant]
     Route: 065
  13. ZOLPIDEM TARTRATE [Concomitant]
     Route: 065
  14. METOCLOPRAMIDE HYDROCHLORIDE [Concomitant]
     Route: 065
  15. HEPARIN CALCIUM [Concomitant]
     Route: 065

REACTIONS (4)
  - BLOOD CULTURE POSITIVE [None]
  - ERYSIPELAS [None]
  - HEPATITIS ACUTE [None]
  - STAPHYLOCOCCUS TEST POSITIVE [None]
